FAERS Safety Report 21071471 (Version 5)
Quarter: 2022Q3

REPORT INFORMATION
  Report Type: Report from Study
  Country: KR (occurrence: KR)
  Receive Date: 20220712
  Receipt Date: 20220928
  Transmission Date: 20221027
  Serious: Yes (Death, Hospitalization)
  Sender: FDA-Public Use
  Company Number: KR-NOVARTISPH-NVSC2022KR157230

PATIENT
  Age: 57 Year
  Sex: Female
  Weight: 49.8 kg

DRUGS (3)
  1. ALPELISIB [Suspect]
     Active Substance: ALPELISIB
     Indication: Triple negative breast cancer
     Dosage: UNK
     Route: 048
     Dates: start: 20211029, end: 20220709
  2. PACLITAXEL [Suspect]
     Active Substance: PACLITAXEL
     Indication: Triple negative breast cancer
     Dosage: 158 MG, ONCE
     Route: 042
     Dates: start: 20211029, end: 20220128
  3. PACLITAXEL [Suspect]
     Active Substance: PACLITAXEL
     Dosage: 151 MG, QW
     Route: 042
     Dates: start: 20220207

REACTIONS (1)
  - Haemorrhage intracranial [Fatal]

NARRATIVE: CASE EVENT DATE: 20220709
